FAERS Safety Report 25417574 (Version 1)
Quarter: 2025Q2

REPORT INFORMATION
  Report Type: Spontaneous
  Country: US (occurrence: US)
  Receive Date: 20250610
  Receipt Date: 20250610
  Transmission Date: 20250716
  Serious: No
  Sender: Kenvue
  Company Number: US-KENVUE-20250503575

PATIENT
  Sex: Male

DRUGS (10)
  1. IMODIUM [Suspect]
     Active Substance: LOPERAMIDE HYDROCHLORIDE
     Indication: Diarrhoea
     Route: 065
  2. OFEV [Concomitant]
     Active Substance: NINTEDANIB
     Indication: Interstitial lung disease
     Dosage: 150 MILLIGRAM, TWICE A DAY
     Route: 048
     Dates: start: 20231024
  3. OFEV [Concomitant]
     Active Substance: NINTEDANIB
     Indication: Idiopathic pulmonary fibrosis
     Route: 048
  4. OFEV [Concomitant]
     Active Substance: NINTEDANIB
     Route: 048
  5. OFEV [Concomitant]
     Active Substance: NINTEDANIB
     Route: 048
  6. OFEV [Concomitant]
     Active Substance: NINTEDANIB
     Route: 048
  7. OFEV [Concomitant]
     Active Substance: NINTEDANIB
     Route: 048
  8. OFEV [Concomitant]
     Active Substance: NINTEDANIB
     Route: 048
  9. TADALAFIL [Concomitant]
     Active Substance: TADALAFIL
     Indication: Product used for unknown indication
     Route: 065
  10. AMLODIPINE [Concomitant]
     Active Substance: AMLODIPINE BESYLATE
     Indication: Product used for unknown indication
     Route: 065

REACTIONS (1)
  - Constipation [Unknown]
